FAERS Safety Report 7722017-1 (Version None)
Quarter: 2011Q3

REPORT INFORMATION
  Report Type: 
  Country: None (occurrence: None)
  Receive Date: 20110826
  Receipt Date: 20110816
  Transmission Date: 20111222
  Serious: Yes (Death, Life-Threatening, Hospitalization, Disabling)
  Sender: FDA-Public Use
  Company Number: 15814239

PATIENT
  Age: 52 Year
  Sex: Male

DRUGS (10)
  1. AMARYL [Concomitant]
  2. APIXABAN [Suspect]
     Indication: EMBOLISM
     Dosage: 10 MILLIGRAM 1 DAY, ORAL
     Route: 048
     Dates: start: 20110415, end: 20110606
  3. WARFARIN SODIUM [Suspect]
     Indication: EMBOLISM
     Dosage: 1 DOSAGE FORM 1 DAY, ORAL
     Route: 048
     Dates: start: 20110415, end: 20110606
  4. ENOXAPARIN SODIUM [Suspect]
     Indication: EMBOLISM
     Dosage: 1.5 MILLILITER 1 DAY, SC
     Route: 058
     Dates: start: 20110415, end: 20110415
  5. DETRALEX (DIOSMIN + HESPERIDIN) [Concomitant]
  6. ACETYLSALICYLIC ACID SRT [Concomitant]
  7. SIOFOR (METFORMIN HCL) [Concomitant]
  8. OMEZ (OMEPRAZOLE) [Concomitant]
  9. BETALOC ZOK (METOPROLOL SUCCINATE) [Concomitant]
  10. PLACEBO [Suspect]
     Indication: EMBOLISM
     Dates: start: 20110415

REACTIONS (10)
  - GASTROINTESTINAL HAEMORRHAGE [None]
  - TACHYCARDIA [None]
  - DISSEMINATED INTRAVASCULAR COAGULATION [None]
  - INTESTINAL INFARCTION [None]
  - ARTERIOSCLEROSIS [None]
  - HYPOTENSION [None]
  - AORTIC THROMBOSIS [None]
  - WHITE BLOOD CELL COUNT INCREASED [None]
  - UPPER GASTROINTESTINAL HAEMORRHAGE [None]
  - ANAEMIA [None]
